FAERS Safety Report 10156791 (Version 1)
Quarter: 2014Q2

REPORT INFORMATION
  Report Type: Spontaneous
  Country: GB (occurrence: None)
  Receive Date: 20140505
  Receipt Date: 20140505
  Transmission Date: 20141212
  Serious: Yes (Congenital Anomaly)
  Sender: FDA-Public Use
  Company Number: 2014P1003515

PATIENT
  Sex: Male

DRUGS (1)
  1. VALPROATE SODIUM [Suspect]
     Indication: EPILEPSY
     Route: 064

REACTIONS (14)
  - Congenital inguinal hernia [None]
  - Coloboma [None]
  - Visual acuity reduced [None]
  - Foetal anticonvulsant syndrome [None]
  - Hypertelorism of orbit [None]
  - Talipes [None]
  - Cardiac murmur [None]
  - Congenital pulmonary artery anomaly [None]
  - Ankyloglossia congenital [None]
  - Developmental delay [None]
  - Hypotonia neonatal [None]
  - Motor developmental delay [None]
  - Speech disorder [None]
  - Foetal exposure during pregnancy [None]
